FAERS Safety Report 4645025-6 (Version None)
Quarter: 2005Q2

REPORT INFORMATION
  Report Type: 
  Country: None (occurrence: None)
  Receive Date: 20050422
  Receipt Date: 20050412
  Transmission Date: 20051028
  Serious: Yes (Death, Life-Threatening, Hospitalization)
  Sender: FDA-Public Use
  Company Number: 2005044544

PATIENT
  Age: 81 Year
  Sex: Male

DRUGS (11)
  1. LINEZOLID TABLET (LINEZOLID) [Suspect]
     Indication: STAPHYLOCOCCAL INFECTION
     Dosage: 1200 MG (600 MG, 2 IN 1 D), ORAL
     Route: 048
     Dates: start: 20020623, end: 20020716
  2. . [Concomitant]
  3. CITALOPRAM (CITALOPRAM) [Suspect]
     Indication: DEPRESSION
     Dosage: 40 MG(20 MG, 2 IN 1 D), ORAL
     Route: 048
     Dates: start: 20020501, end: 20020715
  4. PRDNISONE (PREDNISONE) [Concomitant]
  5. METHOTREXATE [Concomitant]
  6. DIGOXIN [Concomitant]
  7. NITROGLYCERIN [Concomitant]
  8. TORSEMIDE [Concomitant]
  9. INSULIN [Concomitant]
  10. OXAZEPAM [Concomitant]
  11. INSULIN [Concomitant]

REACTIONS (16)
  - ALANINE AMINOTRANSFERASE INCREASED [None]
  - ANAEMIA [None]
  - CARDIAC ARREST [None]
  - CONFUSIONAL STATE [None]
  - DRUG INTERACTION [None]
  - HYPERTENSION [None]
  - LACTIC ACIDOSIS [None]
  - LIVER FUNCTION TEST ABNORMAL [None]
  - MENTAL STATUS CHANGES [None]
  - PROCEDURAL COMPLICATION [None]
  - PYREXIA [None]
  - SEROTONIN SYNDROME [None]
  - TACHYCARDIA [None]
  - THROMBOCYTOPENIA [None]
  - TREMOR [None]
  - VENTRICULAR DYSFUNCTION [None]
